FAERS Safety Report 8472395-3 (Version None)
Quarter: 2012Q2

REPORT INFORMATION
  Report Type: 
  Country: None (occurrence: None)
  Receive Date: 20120627
  Receipt Date: 20120619
  Transmission Date: 20120825
  Serious: Yes (Hospitalization)
  Sender: FDA-Public Use
  Company Number: US-ACTELION-A-NJ2011-52155

PATIENT

DRUGS (6)
  1. REVATIO [Concomitant]
  2. COUMADIN [Concomitant]
  3. TRACLEER [Suspect]
     Indication: PULMONARY ARTERIAL HYPERTENSION
     Dosage: UNK
     Route: 048
     Dates: start: 20100527, end: 20120301
  4. VENTAVIS [Suspect]
     Dosage: 5 ?G, 6-9 X DAILY
     Route: 055
  5. ADCIRCA [Concomitant]
  6. VENTAVIS [Suspect]
     Indication: PULMONARY ARTERIAL HYPERTENSION
     Dosage: UNK
     Route: 055
     Dates: start: 20110502

REACTIONS (1)
  - DEHYDRATION [None]
